FAERS Safety Report 12775735 (Version 4)
Quarter: 2017Q1

REPORT INFORMATION
  Report Type: Spontaneous
  Country: FR (occurrence: FR)
  Receive Date: 20160923
  Receipt Date: 20170201
  Transmission Date: 20170428
  Serious: Yes (Hospitalization)
  Sender: FDA-Public Use
  Company Number: FR-CELGENEUS-FRA-2016092561

PATIENT
  Age: 73 Year
  Sex: Male

DRUGS (14)
  1. DEXAMETHASONE. [Suspect]
     Active Substance: DEXAMETHASONE
     Indication: PLASMA CELL MYELOMA
     Route: 048
     Dates: start: 20150106, end: 20150113
  2. ORACILLINE [Concomitant]
     Active Substance: PENICILLIN V
     Indication: INFECTION PROPHYLAXIS
     Dosage: 2000000 IU (INTERNATIONAL UNIT)
     Route: 058
     Dates: start: 20150128
  3. OROCAL D3 [Concomitant]
     Active Substance: CALCIUM CARBONATE\CHOLECALCIFEROL
     Indication: OSTEOPOROSIS PROPHYLAXIS
     Dosage: 1 TABLET
     Route: 048
     Dates: start: 20150203
  4. RIBAVARIN [Concomitant]
     Active Substance: RIBAVIRIN
     Route: 048
     Dates: start: 20160901
  5. NEULASTA [Concomitant]
     Active Substance: PEGFILGRASTIM
     Route: 058
     Dates: start: 20151114
  6. KARDEGIC [Concomitant]
     Active Substance: ASPIRIN LYSINE
     Indication: THROMBOSIS PROPHYLAXIS
     Dosage: 75 MILLIGRAM
     Route: 048
     Dates: start: 20150105
  7. NEULASTA [Concomitant]
     Active Substance: PEGFILGRASTIM
     Indication: PROPHYLAXIS
     Route: 058
     Dates: start: 20150915, end: 20150919
  8. CC-4047 [Suspect]
     Active Substance: POMALIDOMIDE
     Indication: PLASMA CELL MYELOMA
     Dosage: 4 MILLIGRAM
     Route: 048
     Dates: start: 20150106, end: 20160308
  9. DEXAMETHASONE. [Suspect]
     Active Substance: DEXAMETHASONE
     Route: 048
     Dates: start: 20160210, end: 20160302
  10. RIBAVARIN [Concomitant]
     Active Substance: RIBAVIRIN
     Indication: HEPATITIS VIRAL
     Route: 048
     Dates: start: 20150805
  11. ZELITREX [Concomitant]
     Active Substance: VALACYCLOVIR HYDROCHLORIDE
     Indication: INFECTION PROPHYLAXIS
     Dosage: 500 MILLIGRAM
     Route: 048
     Dates: start: 20151110
  12. OMEPRAZOLE. [Concomitant]
     Active Substance: OMEPRAZOLE
     Indication: GASTRITIS PROPHYLAXIS
     Dosage: 20 MILLIGRAM
     Route: 048
     Dates: start: 20151110
  13. PENTACARINAT [Concomitant]
     Active Substance: PENTAMIDINE ISETHIONATE
     Indication: INFECTION PROPHYLAXIS
     Route: 065
     Dates: start: 20150915
  14. RIBAVARIN [Concomitant]
     Active Substance: RIBAVIRIN
     Route: 048
     Dates: start: 20151014, end: 20160831

REACTIONS (1)
  - Prostatitis Escherichia coli [Not Recovered/Not Resolved]

NARRATIVE: CASE EVENT DATE: 20160715
